FAERS Safety Report 10051009 (Version 2)
Quarter: 2015Q1

REPORT INFORMATION
  Report Type: Report from Study
  Country: GB (occurrence: GB)
  Receive Date: 20140401
  Receipt Date: 20150326
  Transmission Date: 20150720
  Serious: Yes (Death, Other)
  Sender: FDA-Public Use
  Company Number: GB-AMGEN-GBRCT2014022502

PATIENT
  Age: 63 Year
  Sex: Female
  Weight: 56 kg

DRUGS (9)
  1. AMITRIPTYLINE [Concomitant]
     Active Substance: AMITRIPTYLINE
     Dosage: UNK
     Dates: start: 20120701
  2. INDAPAMIDE. [Concomitant]
     Active Substance: INDAPAMIDE
     Dosage: UNK
     Dates: start: 20110515
  3. CETIRIZINE [Concomitant]
     Active Substance: CETIRIZINE HYDROCHLORIDE
     Dosage: UNK
     Dates: start: 20000115
  4. OMEPRAZOLE. [Concomitant]
     Active Substance: OMEPRAZOLE
     Dosage: UNK
     Dates: start: 20110515
  5. SIMVASTATIN. [Concomitant]
     Active Substance: SIMVASTATIN
     Dosage: UNK
     Dates: start: 20110515
  6. ORAMORPH SR SUSTAINED RELEASE [Concomitant]
     Active Substance: MORPHINE SULFATE
     Dosage: UNK
     Dates: start: 20120701
  7. ETANERCEPT [Suspect]
     Active Substance: ETANERCEPT
     Indication: PRODUCT USED FOR UNKNOWN INDICATION
     Dosage: 50 MG, QWK
     Route: 065
     Dates: start: 20120403, end: 20120517
  8. CYCLIZINE [Concomitant]
     Active Substance: CYCLIZINE
     Dosage: UNK
     Dates: start: 20120701
  9. LORAZEPAM. [Concomitant]
     Active Substance: LORAZEPAM
     Dosage: UNK
     Dates: start: 20120701

REACTIONS (1)
  - Breast cancer metastatic [Fatal]

NARRATIVE: CASE EVENT DATE: 20120906
